FAERS Safety Report 5151185-3 (Version None)
Quarter: 2006Q4

REPORT INFORMATION
  Report Type: 
  Country: None (occurrence: None)
  Receive Date: 20061114
  Receipt Date: 20061114
  Transmission Date: 20070319
  Serious: Yes (Disabling)
  Sender: FDA-Public Use
  Company Number: None

PATIENT
  Age: 67 Year
  Sex: Male
  Weight: 87.9978 kg

DRUGS (2)
  1. LEVAQUIN [Suspect]
     Indication: URINARY TRACT INFECTION
     Dosage: 1      PER DAY    PO
     Route: 048
     Dates: start: 20060810, end: 20060817
  2. CIPRO [Suspect]
     Indication: URINARY TRACT INFECTION
     Dosage: 1    PER DAY   PO
     Route: 048
     Dates: start: 20060820, end: 20060825

REACTIONS (1)
  - TENDON RUPTURE [None]
